FAERS Safety Report 10754023 (Version 1)
Quarter: 2015Q1

REPORT INFORMATION
  Report Type: Spontaneous
  Country: FR (occurrence: FR)
  Receive Date: 20150202
  Receipt Date: 20150202
  Transmission Date: 20150721
  Serious: Yes (Death)
  Sender: FDA-Public Use
  Company Number: FR-ROCHE-1527816

PATIENT
  Age: 64 Year
  Sex: Male

DRUGS (23)
  1. BLEOMYCINE BELLON [Suspect]
     Active Substance: BLEOMYCIN SULFATE
     Indication: PRODUCT USED FOR UNKNOWN INDICATION
     Route: 042
     Dates: start: 200807, end: 200811
  2. ENDOXAN [Suspect]
     Active Substance: CYCLOPHOSPHAMIDE
     Route: 042
     Dates: end: 200901
  3. ETOPOSIDE MYLAN [Suspect]
     Active Substance: ETOPOSIDE
     Route: 042
     Dates: start: 20090226, end: 20090302
  4. BICNU [Suspect]
     Active Substance: CARMUSTINE
     Indication: PRODUCT USED FOR UNKNOWN INDICATION
     Route: 042
     Dates: start: 20090225, end: 20090302
  5. METFORMINE [Concomitant]
     Active Substance: METFORMIN HYDROCHLORIDE
  6. NEURONTIN [Concomitant]
     Active Substance: GABAPENTIN
  7. ISOPHANE INSULIN [Concomitant]
     Active Substance: INSULIN NOS
  8. DIFFU K [Concomitant]
     Active Substance: POTASSIUM CHLORIDE
  9. INEXIUM [Concomitant]
     Active Substance: ESOMEPRAZOLE
  10. SKENAN [Concomitant]
     Active Substance: MORPHINE SULFATE
  11. METHOTREXATE (METHOTREXATE SODIUM) [Suspect]
     Active Substance: METHOTREXATE SODIUM
     Indication: PRODUCT USED FOR UNKNOWN INDICATION
     Route: 042
     Dates: start: 200811, end: 200812
  12. ETOPOSIDE MYLAN [Suspect]
     Active Substance: ETOPOSIDE
     Indication: PRODUCT USED FOR UNKNOWN INDICATION
     Route: 042
     Dates: start: 20090225, end: 20090302
  13. ALKERAN [Suspect]
     Active Substance: MELPHALAN
     Indication: PRODUCT USED FOR UNKNOWN INDICATION
     Route: 042
     Dates: start: 20090225, end: 20090302
  14. LASILIX [Concomitant]
     Active Substance: FUROSEMIDE
  15. ARACYTINE [Suspect]
     Active Substance: CYTARABINE
     Indication: PRODUCT USED FOR UNKNOWN INDICATION
     Route: 042
     Dates: start: 20090225, end: 20090302
  16. SOLUPRED (FRANCE) [Concomitant]
     Active Substance: PREDNISOLONE
  17. BISOCE [Concomitant]
     Active Substance: BISOPROLOL
  18. ADRIBLASTINE [Suspect]
     Active Substance: DOXORUBICIN
     Indication: PRODUCT USED FOR UNKNOWN INDICATION
     Route: 042
     Dates: start: 200807, end: 200811
  19. ENDOXAN [Suspect]
     Active Substance: CYCLOPHOSPHAMIDE
     Indication: PRODUCT USED FOR UNKNOWN INDICATION
     Route: 042
     Dates: start: 200807
  20. ELDISINE [Suspect]
     Active Substance: VINDESINE SULFATE
     Indication: PRODUCT USED FOR UNKNOWN INDICATION
     Route: 042
     Dates: start: 200807, end: 200811
  21. ONCOVIN [Suspect]
     Active Substance: VINCRISTINE SULFATE
     Indication: PRODUCT USED FOR UNKNOWN INDICATION
     Route: 042
     Dates: start: 200807, end: 200811
  22. TRAMADOL [Concomitant]
     Active Substance: TRAMADOL
  23. MABTHERA [Suspect]
     Active Substance: RITUXIMAB
     Indication: NON-HODGKIN^S LYMPHOMA
     Route: 042
     Dates: start: 200807, end: 200811

REACTIONS (1)
  - Myelodysplastic syndrome [Fatal]

NARRATIVE: CASE EVENT DATE: 201210
